FAERS Safety Report 6602474-4 (Version None)
Quarter: 2010Q1

REPORT INFORMATION
  Report Type: 
  Country: None (occurrence: None)
  Receive Date: 20100225
  Receipt Date: 20100217
  Transmission Date: 20100710
  Serious: Yes (Other)
  Sender: FDA-Public Use
  Company Number: US-AMGEN-QUU391033

PATIENT
  Sex: Female

DRUGS (8)
  1. ENBREL [Suspect]
     Indication: RHEUMATOID ARTHRITIS
     Route: 058
     Dates: start: 20070816, end: 20100211
  2. METHOTREXATE [Concomitant]
     Route: 048
  3. CALCIUM CARBONATE/VITAMIN D3 [Concomitant]
  4. FOLIC ACID [Concomitant]
     Route: 048
  5. NAPROXEN [Concomitant]
     Route: 048
  6. PREDNISONE TAB [Concomitant]
  7. VITAMIN E [Concomitant]
  8. UNSPECIFIED MEDICATION [Concomitant]
     Route: 058

REACTIONS (4)
  - DIZZINESS [None]
  - DRY EYE [None]
  - PHOTOPHOBIA [None]
  - RETINAL TEAR [None]
